FAERS Safety Report 6706268-0 (Version None)
Quarter: 2010Q2

REPORT INFORMATION
  Report Type: 
  Country: None (occurrence: None)
  Receive Date: 20100423
  Receipt Date: 20100121
  Transmission Date: 20101027
  Serious: No
  Sender: FDA-Public Use
  Company Number: ALL1-2010-00308

PATIENT
  Age: 16 Year
  Sex: Male
  Weight: 63.5 kg

DRUGS (2)
  1. VYVANSE [Suspect]
     Indication: ATTENTION DEFICIT/HYPERACTIVITY DISORDER
     Dosage: 70 MG, 1X/DAY;QD, ORAL
     Route: 048
     Dates: start: 20070101
  2. MULTIVITAMIN /00831701/ (VITAMINS NOS) [Concomitant]

REACTIONS (4)
  - ACNE [None]
  - DECREASED APPETITE [None]
  - INSOMNIA [None]
  - OFF LABEL USE [None]
